FAERS Safety Report 19681704 (Version 1)
Quarter: 2021Q3

REPORT INFORMATION
  Report Type: Spontaneous
  Country: US (occurrence: US)
  Receive Date: 20210810
  Receipt Date: 20210810
  Transmission Date: 20211014
  Serious: Yes (Other)
  Sender: FDA-Public Use
  Company Number: US-REGENERON PHARMACEUTICALS, INC.-2021-74876

PATIENT

DRUGS (1)
  1. EVKEEZA [Suspect]
     Active Substance: EVINACUMAB-DGNB
     Indication: TYPE IIA HYPERLIPIDAEMIA
     Dosage: 1200 MG, MONTHLY
     Route: 042
     Dates: start: 20210618

REACTIONS (3)
  - Back pain [Unknown]
  - Headache [Unknown]
  - Dyspnoea [Unknown]

NARRATIVE: CASE EVENT DATE: 20210716
